FAERS Safety Report 23153131 (Version 1)
Quarter: 2023Q4

REPORT INFORMATION
  Report Type: Spontaneous
  Country: US (occurrence: None)
  Receive Date: 20231106
  Receipt Date: 20231106
  Transmission Date: 20240110
  Serious: Yes (Hospitalization)
  Sender: FDA-Public Use
  Company Number: None

PATIENT
  Age: 54 Year
  Sex: Male

DRUGS (3)
  1. ADVATE [Suspect]
     Active Substance: ANTIHEMOPHILIC FACTOR, HUMAN RECOMBINANT
     Indication: Factor VIII deficiency
     Dosage: OTHER QUANTITY : 5650 UNITS;?FREQUENCY : AS NEEDED?
     Route: 042
     Dates: start: 202310
  2. ADVATE [Suspect]
     Active Substance: ANTIHEMOPHILIC FACTOR, HUMAN RECOMBINANT
     Indication: Factor VIII deficiency
     Dosage: OTHER QUANTITY : 5650 UNITS;?FREQUENCY : AS NEEDED?
     Route: 042
     Dates: start: 202310
  3. HEMLIBRA SDV [Concomitant]

REACTIONS (1)
  - Lung disorder [None]

NARRATIVE: CASE EVENT DATE: 20231004
